FAERS Safety Report 13102945 (Version 2)
Quarter: 2017Q1

REPORT INFORMATION
  Report Type: Report from Study
  Country: CA (occurrence: CA)
  Receive Date: 20170110
  Receipt Date: 20170120
  Transmission Date: 20170428
  Serious: Yes (Other)
  Sender: FDA-Public Use
  Company Number: CA-GILEAD-2016-0248186

PATIENT
  Age: 61 Year
  Sex: Male

DRUGS (1)
  1. LEDIPASVIR/SOFOSBUVIR [Suspect]
     Active Substance: LEDIPASVIR\SOFOSBUVIR
     Indication: CHRONIC HEPATITIS C
     Dosage: 1 DF, UNK
     Route: 048
     Dates: start: 20161117

REACTIONS (14)
  - Fatigue [Not Recovered/Not Resolved]
  - Constipation [Not Recovered/Not Resolved]
  - Thirst [Unknown]
  - Dyspepsia [Unknown]
  - Obstructive airways disorder [Unknown]
  - Vomiting [Unknown]
  - Dysphagia [Unknown]
  - Oral herpes [Unknown]
  - Dry throat [Unknown]
  - Increased appetite [Unknown]
  - Exposure to mould [Recovered/Resolved]
  - Panic attack [Unknown]
  - Feeding disorder [Not Recovered/Not Resolved]
  - Headache [Not Recovered/Not Resolved]

NARRATIVE: CASE EVENT DATE: 2016
